FAERS Safety Report 5310216-8 (Version None)
Quarter: 2007Q2

REPORT INFORMATION
  Report Type: 
  Country: None (occurrence: None)
  Receive Date: 20070427
  Receipt Date: 20070419
  Transmission Date: 20071010
  Serious: Yes (Life-Threatening)
  Sender: FDA-Public Use
  Company Number: JP-ROCHE-486177

PATIENT
  Age: 14 Year
  Sex: Male
  Weight: 60 kg

DRUGS (8)
  1. TAMIFLU [Suspect]
     Dosage: AT 7:00 PM.
     Route: 048
     Dates: start: 20070223, end: 20070223
  2. TAMIFLU [Suspect]
     Route: 048
     Dates: start: 20070223, end: 20070223
  3. SINGULAIR [Concomitant]
     Route: 048
     Dates: start: 20050909
  4. FLUTICASONE PROPIONATE [Concomitant]
     Dosage: FORM REPORTED AS INHALANT.
     Route: 055
     Dates: start: 20050825
  5. LUVOX [Concomitant]
     Dosage: GENERIC REPORTED AS FLUVOXAMINE MALEATE.
     Route: 048
     Dates: start: 20020615
  6. LEXOTAN [Concomitant]
     Route: 048
     Dates: start: 20020615
  7. HIRNAMIN [Concomitant]
     Dosage: FORM REPORTED AS FINE GRANULE. GENERIC REPORTED AS LEVOMEPROMAZINE MALEATE.
     Route: 048
     Dates: start: 20020615
  8. TEGRETOL [Concomitant]
     Route: 048
     Dates: start: 20020615

REACTIONS (1)
  - ABNORMAL BEHAVIOUR [None]
